FAERS Safety Report 7281603-6 (Version None)
Quarter: 2010Q4

REPORT INFORMATION
  Report Type: 
  Country: None (occurrence: None)
  Receive Date: 20101221
  Receipt Date: 20100503
  Transmission Date: 20110411
  Serious: Yes (Other)
  Sender: FDA-Public Use
  Company Number: WAES 1005USA00242

PATIENT
  Age: 62 Year
  Sex: Male

DRUGS (4)
  1. JANUVIA [Suspect]
     Indication: DIABETES MELLITUS
     Dosage: 100 MG/PO, 50 MG/PO
     Route: 048
     Dates: start: 20080101, end: 20100201
  2. JANUVIA [Suspect]
     Indication: DIABETES MELLITUS
     Dosage: 100 MG/PO, 50 MG/PO
     Route: 048
     Dates: start: 20100201
  3. ACTOS [Concomitant]
  4. GLIPIZIDE [Concomitant]

REACTIONS (4)
  - DYSPEPSIA [None]
  - PANCREATITIS [None]
  - RASH [None]
  - RENAL IMPAIRMENT [None]
